FAERS Safety Report 5605915-4 (Version None)
Quarter: 2008Q1

REPORT INFORMATION
  Report Type: 
  Country: None (occurrence: None)
  Receive Date: 20080123
  Receipt Date: 20080107
  Transmission Date: 20080703
  Serious: Yes (Life-Threatening)
  Sender: FDA-Public Use
  Company Number: 000#8#2008-00005

PATIENT
  Age: 40 Year
  Sex: Female

DRUGS (11)
  1. ISOSORBIDE DINITRATE [Suspect]
     Indication: ARTERIOSPASM CORONARY
     Dosage: 3 MG/H; INTRAVENOUS DRIP, 5 MG/H; INTRAVENOUS DRIP
     Route: 041
  2. NITROGLYCERIN [Suspect]
     Indication: ARTERIOSPASM CORONARY
     Dosage: .5 MG, INTRAVENOUS (NOT OTHERWISE SPECIFIED)
     Route: 042
  3. NITROGLYCERIN [Suspect]
     Dosage: SEE IMAGE
     Route: 022
  4. NICORANDIL (NICORANDIL) [Suspect]
     Indication: ARTERIOSPASM CORONARY
     Dosage: 3 MG/H; INTRAVENOUS DRIP, 6 MG/H; INTRAVENOUS DRIP
     Route: 041
  5. NICORANDIL (NICORANDIL) [Suspect]
     Dosage: SEE IMAGE
     Route: 022
  6. DILTIAZEM [Suspect]
     Indication: ARTERIOSPASM CORONARY
     Dosage: SEE IMAGE
     Route: 041
  7. DILTIAZEM [Suspect]
     Indication: ARTERIOSPASM CORONARY
     Dosage: 200 MG (100 MG 2 IN 1 DAY(S); ORAL
     Route: 048
  8. NIFEDIPINE [Suspect]
     Indication: ARTERIOSPASM CORONARY
     Dosage: 20 MG; ORAL
     Route: 048
  9. MIDAZOLAM HCL [Concomitant]
  10. DOPAMINE HCL [Concomitant]
  11. NOREPINEPHRINE BITARTRATE [Concomitant]

REACTIONS (4)
  - CORONARY ARTERY OCCLUSION [None]
  - DRUG INEFFECTIVE [None]
  - LOSS OF CONSCIOUSNESS [None]
  - VENTRICULAR TACHYCARDIA [None]
